FAERS Safety Report 17006976 (Version 6)
Quarter: 2020Q1

REPORT INFORMATION
  Report Type: Spontaneous
  Country: JP (occurrence: JP)
  Receive Date: 20191107
  Receipt Date: 20200313
  Transmission Date: 20200409
  Serious: Yes (Hospitalization, Other)
  Sender: FDA-Public Use
  Company Number: JP-AMGEN-JPNSP2019184571

PATIENT
  Age: 9 Decade
  Sex: Female

DRUGS (2)
  1. NESP [Suspect]
     Active Substance: DARBEPOETIN ALFA
     Indication: CHRONIC KIDNEY DISEASE
     Dosage: UNK
     Route: 010
     Dates: end: 20191025
  2. NESP [Suspect]
     Active Substance: DARBEPOETIN ALFA
     Indication: NEPHROGENIC ANAEMIA
     Dosage: UNK
     Route: 010
     Dates: end: 20191025

REACTIONS (1)
  - Aplasia pure red cell [Recovering/Resolving]
